FAERS Safety Report 5331985-7 (Version None)
Quarter: 2007Q2

REPORT INFORMATION
  Report Type: 
  Country: None (occurrence: None)
  Receive Date: 20070523
  Receipt Date: 20070516
  Transmission Date: 20071010
  Serious: No
  Sender: FDA-Public Use
  Company Number: EC-BAXTER-2007BH004541

PATIENT
  Age: 20 Year
  Sex: Male

DRUGS (1)
  1. BUMINATE 25% [Suspect]
     Indication: HYPOVOLAEMIA
     Dosage: DOSE UNIT:UNKNOWN
     Route: 042

REACTIONS (1)
  - PARALYSIS [None]
